FAERS Safety Report 18477025 (Version 1)
Quarter: 2020Q4

REPORT INFORMATION
  Report Type: Report from Study
  Country: BR (occurrence: BR)
  Receive Date: 20201107
  Receipt Date: 20201107
  Transmission Date: 20210114
  Serious: Yes (Other)
  Sender: FDA-Public Use
  Company Number: BR-TAKEDA-BR202003277

PATIENT

DRUGS (4)
  1. FACTOR VII [Concomitant]
     Active Substance: COAGULATION FACTOR VII HUMAN
     Indication: HAEMORRHAGE
  2. HEMO-8R [Suspect]
     Active Substance: ANTIHEMOPHILIC FACTOR, HUMAN RECOMBINANT
     Indication: FACTOR VIII DEFICIENCY
     Dosage: 750 INTERNATIONAL UNIT
     Route: 042
  3. HEMO-8R [Suspect]
     Active Substance: ANTIHEMOPHILIC FACTOR, HUMAN RECOMBINANT
     Dosage: 1500 INTERNATIONAL UNIT, 3X A WEEK
     Route: 042
  4. FEIBA NF [Suspect]
     Active Substance: ANTI-INHIBITOR COAGULANT COMPLEX
     Indication: FACTOR VIII DEFICIENCY
     Dosage: 1000 INTERNATIONAL UNIT
     Route: 042
     Dates: start: 2019

REACTIONS (4)
  - Peripheral swelling [Unknown]
  - Anti factor VIII antibody increased [Unknown]
  - Vein disorder [Unknown]
  - Drug ineffective [Unknown]
